FAERS Safety Report 10167478 (Version 1)
Quarter: 2014Q2

REPORT INFORMATION
  Report Type: Report from Study
  Country: US (occurrence: US)
  Receive Date: 20140512
  Receipt Date: 20140512
  Transmission Date: 20141212
  Serious: Yes (Hospitalization)
  Sender: FDA-Public Use
  Company Number: PHEH2014US009314

PATIENT
  Age: 50 Year
  Sex: Male

DRUGS (1)
  1. CLOZARIL [Suspect]
     Dosage: 200 MG, UNK

REACTIONS (4)
  - Respiratory tract infection [Unknown]
  - Pneumonia [Unknown]
  - Neutrophil percentage increased [Unknown]
  - White blood cell count increased [Unknown]
